FAERS Safety Report 4893201-X (Version None)
Quarter: 2005Q4

REPORT INFORMATION
  Report Type: 
  Country: None (occurrence: None)
  Receive Date: 20051223
  Receipt Date: 20050925
  Transmission Date: 20060501
  Serious: No
  Sender: FDA-Public Use
  Company Number: 2005PV002691

PATIENT
  Age: 48 Year
  Sex: Male

DRUGS (13)
  1. SYMLIN [Suspect]
     Indication: DIABETES MELLITUS NON-INSULIN-DEPENDENT
     Dosage: 60 MCG;TID;SC
     Route: 058
     Dates: start: 20050923, end: 20050924
  2. METFORMIN [Concomitant]
  3. ZETIA [Concomitant]
  4. LOVASTATIN [Concomitant]
  5. ENALAPRIL [Concomitant]
  6. ASPIRIN [Concomitant]
  7. TRICOR [Concomitant]
  8. ACTOS [Concomitant]
  9. DIOVAN HCT [Concomitant]
  10. GLIPIZIDE ER [Concomitant]
  11. METOPROLOL [Concomitant]
  12. VITAMIN B50 [Concomitant]
  13. OMEGA 3 [Concomitant]

REACTIONS (1)
  - EARLY SATIETY [None]
